FAERS Safety Report 14576704 (Version 3)
Quarter: 2018Q2

REPORT INFORMATION
  Report Type: Spontaneous
  Country: US (occurrence: US)
  Receive Date: 20180227
  Receipt Date: 20180424
  Transmission Date: 20180711
  Serious: No
  Sender: FDA-Public Use
  Company Number: US-VERTEX PHARMACEUTICALS-2018-001356

PATIENT
  Age: 9 Year
  Sex: Female
  Weight: 31 kg

DRUGS (4)
  1. ORKAMBI [Suspect]
     Active Substance: IVACAFTOR\LUMACAFTOR
     Indication: CYSTIC FIBROSIS
     Dosage: 2 DOSAGE FORM (100/125 MG EACH), BID
     Route: 048
     Dates: start: 20180115, end: 2018
  2. DNASE [Concomitant]
     Active Substance: DEOXYRIBONUCLIEC ACID
  3. OMEPRAZOLE. [Concomitant]
     Active Substance: OMEPRAZOLE
  4. PULMOZYME [Concomitant]
     Active Substance: DORNASE ALFA
     Dosage: 2.5 MG

REACTIONS (12)
  - Lethargy [Unknown]
  - Fatigue [Unknown]
  - Affect lability [Unknown]
  - Breast enlargement [Unknown]
  - Autophobia [Unknown]
  - Anger [Unknown]
  - Hypersomnia [Unknown]
  - Educational problem [Unknown]
  - Weight decreased [Unknown]
  - Aggression [Unknown]
  - Hypertrichosis [Unknown]
  - Feeling abnormal [Unknown]

NARRATIVE: CASE EVENT DATE: 201801
